FAERS Safety Report 10213344 (Version 1)
Quarter: 2014Q2

REPORT INFORMATION
  Report Type: Spontaneous
  Country: US (occurrence: None)
  Receive Date: 20140530
  Receipt Date: 20140530
  Transmission Date: 20141212
  Serious: Yes (Hospitalization)
  Sender: FDA-Public Use
  Company Number: None

PATIENT
  Age: 67 Year
  Sex: Male
  Weight: 122.1 kg

DRUGS (1)
  1. LISINOPRIL [Suspect]
     Dates: start: 20140327

REACTIONS (2)
  - Hyperkalaemia [None]
  - Renal impairment [None]
